FAERS Safety Report 8597792-7 (Version None)
Quarter: 2012Q3

REPORT INFORMATION
  Report Type: 
  Country: None (occurrence: None)
  Receive Date: 20120816
  Receipt Date: 20120813
  Transmission Date: 20120928
  Serious: Yes (Other)
  Sender: FDA-Public Use
  Company Number: PHHY2011BR51842

PATIENT
  Age: 70 Year
  Sex: Female

DRUGS (4)
  1. VOLTAREN [Suspect]
     Indication: PAIN
     Dosage: 50 MG, TID (1 SUPPOSITORY EVERY 8 HOURS)
     Dates: start: 19900101
  2. EPISOL [Concomitant]
  3. DIPYRONE TAB [Concomitant]
     Dosage: 40 DRP EVERY NIGHT
  4. VALIUM [Concomitant]

REACTIONS (6)
  - BONE DISORDER [None]
  - PAIN [None]
  - HYPERTENSION [None]
  - OSTEOARTHRITIS [None]
  - RAYNAUD'S PHENOMENON [None]
  - SPINAL FRACTURE [None]
